FAERS Safety Report 9867915 (Version 8)
Quarter: 2014Q2

REPORT INFORMATION
  Report Type: Report from Study
  Country: CA (occurrence: CA)
  Receive Date: 20140204
  Receipt Date: 20140425
  Transmission Date: 20141212
  Serious: Yes (Hospitalization)
  Sender: FDA-Public Use
  Company Number: PHHY2013CA022229

PATIENT
  Sex: Male

DRUGS (2)
  1. AFINITOR [Suspect]
     Indication: NEUROENDOCRINE TUMOUR
     Dosage: 2.5 MG, DAILY
     Route: 048
     Dates: start: 20130217
  2. SANDOSTATIN LAR [Suspect]
     Dosage: 30 MG, QMO
     Route: 030
     Dates: start: 20110207

REACTIONS (4)
  - Spinal cord neoplasm [Unknown]
  - Paralysis [Unknown]
  - Abasia [Not Recovered/Not Resolved]
  - Blood count abnormal [Unknown]
